FAERS Safety Report 6941790-3 (Version None)
Quarter: 2010Q3

REPORT INFORMATION
  Report Type: 
  Country: None (occurrence: None)
  Receive Date: 20100826
  Receipt Date: 20100823
  Transmission Date: 20110219
  Serious: Yes (Hospitalization)
  Sender: FDA-Public Use
  Company Number: US-ASTRAZENECA-2007UW13912

PATIENT
  Age: 12160 Day
  Sex: Male
  Weight: 131.5 kg

DRUGS (43)
  1. SEROQUEL [Suspect]
     Indication: BIPOLAR DISORDER
     Dosage: 300-800MG
     Route: 048
     Dates: start: 20020130
  2. SEROQUEL [Suspect]
     Indication: DEPRESSION
     Dosage: 300-800MG
     Route: 048
     Dates: start: 20020130
  3. SEROQUEL [Suspect]
     Indication: SCHIZOPHRENIA
     Dosage: 300-800MG
     Route: 048
     Dates: start: 20020130
  4. SEROQUEL [Suspect]
     Indication: AGITATION
     Dosage: 300-800MG
     Route: 048
     Dates: start: 20020130
  5. SEROQUEL [Suspect]
     Indication: ANXIETY
     Dosage: 300-800MG
     Route: 048
     Dates: start: 20020130
  6. SEROQUEL [Suspect]
     Dosage: 300-500MG
     Route: 048
     Dates: start: 20020701, end: 20051201
  7. SEROQUEL [Suspect]
     Dosage: 300-500MG
     Route: 048
     Dates: start: 20020701, end: 20051201
  8. SEROQUEL [Suspect]
     Dosage: 300-500MG
     Route: 048
     Dates: start: 20020701, end: 20051201
  9. SEROQUEL [Suspect]
     Dosage: 300-500MG
     Route: 048
     Dates: start: 20020701, end: 20051201
  10. SEROQUEL [Suspect]
     Dosage: 300-500MG
     Route: 048
     Dates: start: 20020701, end: 20051201
  11. SEROQUEL [Suspect]
     Dosage: 300-500MG
     Route: 048
     Dates: start: 20021219, end: 20060101
  12. SEROQUEL [Suspect]
     Dosage: 300-500MG
     Route: 048
     Dates: start: 20021219, end: 20060101
  13. SEROQUEL [Suspect]
     Dosage: 300-500MG
     Route: 048
     Dates: start: 20021219, end: 20060101
  14. SEROQUEL [Suspect]
     Dosage: 300-500MG
     Route: 048
     Dates: start: 20021219, end: 20060101
  15. SEROQUEL [Suspect]
     Dosage: 300-500MG
     Route: 048
     Dates: start: 20021219, end: 20060101
  16. RISPERDAL [Concomitant]
     Indication: SCHIZOPHRENIA
     Dates: start: 19950101, end: 20000101
  17. ASPIRIN [Concomitant]
     Route: 048
  18. LASIX [Concomitant]
     Route: 048
  19. GLUCOPHAGE [Concomitant]
     Dosage: 500-1000 MG BID
     Route: 048
  20. NAPROSYN [Concomitant]
     Route: 048
  21. PROTONIX [Concomitant]
     Dosage: 20-40 MG BEFORE BREAKFAST
     Route: 048
  22. ZOCOR [Concomitant]
     Dosage: 40-80 MG DAILY
     Route: 048
  23. ACETAMINOPHEN [Concomitant]
     Indication: PAIN
     Dosage: 325-600MG Q 4 H PRN
     Route: 048
  24. ACETAMINOPHEN [Concomitant]
     Indication: DISCOMFORT
     Dosage: 325-600MG Q 4 H PRN
     Route: 048
  25. CATAPRES [Concomitant]
     Indication: ALCOHOL WITHDRAWAL SYNDROME
     Dosage: 0.1 MG TID PRN
     Route: 048
  26. ATIVAN [Concomitant]
     Dosage: 0.4 MG Q 4 H PRN-1MG
     Route: 048
     Dates: start: 20060101
  27. LOPID [Concomitant]
     Route: 048
  28. PROLIXIN [Concomitant]
     Dosage: 5-12.5 MG HS
     Route: 048
     Dates: start: 20060101
  29. DEPAKOTE [Concomitant]
     Dosage: 1TAB IN MORNING AND 2 AT NIGHT
     Route: 048
  30. DESYREL [Concomitant]
     Indication: SLEEP DISORDER
     Dosage: 50-100MG QHS PRN,100MG  AT NIGHT
     Route: 048
  31. LIPITOR [Concomitant]
     Dosage: 10-40MG
     Route: 048
  32. ZYPREXA [Concomitant]
     Indication: SCHIZOPHRENIA
     Dosage: 5-20MG
     Route: 048
     Dates: start: 20020101, end: 20050101
  33. TRICOR [Concomitant]
     Dosage: 54 MG,145 MG
     Route: 048
  34. NEXIUM [Concomitant]
     Route: 048
  35. ZETIA [Concomitant]
     Route: 048
  36. COLACE [Concomitant]
     Dosage: 100 MG DAILY
     Route: 048
  37. ATENOLOL [Concomitant]
     Route: 048
  38. ABILIFY [Concomitant]
     Dosage: 5-10 MG
     Dates: start: 20050101, end: 20060101
  39. HALDOL [Concomitant]
     Dates: start: 19980101
  40. GEODON [Concomitant]
     Dates: start: 20050101
  41. NAVANE [Concomitant]
  42. TRAZODONE HCL [Concomitant]
     Dates: start: 20060101
  43. CLONOPIN [Concomitant]
     Dates: start: 20060101

REACTIONS (14)
  - ALCOHOL ABUSE [None]
  - ARTHRITIS [None]
  - DYSLIPIDAEMIA [None]
  - GASTROOESOPHAGEAL REFLUX DISEASE [None]
  - HYPERCHOLESTEROLAEMIA [None]
  - HYPERTENSION [None]
  - HYPOGLYCAEMIA [None]
  - OBESITY [None]
  - SCHIZOAFFECTIVE DISORDER [None]
  - SCHIZOPHRENIA, PARANOID TYPE [None]
  - SKIN LACERATION [None]
  - SLEEP APNOEA SYNDROME [None]
  - TOOTH ABSCESS [None]
  - TYPE 2 DIABETES MELLITUS [None]
